FAERS Safety Report 9495868 (Version 2)
Quarter: 2013Q3

REPORT INFORMATION
  Report Type: Report from Study
  Country: FI (occurrence: FI)
  Receive Date: 20130903
  Receipt Date: 20130903
  Transmission Date: 20140515
  Serious: Yes (Life-Threatening, Hospitalization)
  Sender: FDA-Public Use
  Company Number: PHHO2012FI006462

PATIENT
  Age: 65 Year
  Sex: Male
  Weight: 115 kg

DRUGS (10)
  1. ACETYLSALICYLIC ACID [Suspect]
  2. ALISKIREN [Suspect]
     Indication: CARDIOVASCULAR DISORDER
     Route: 048
     Dates: start: 20090515
  3. NOVOMIX [Concomitant]
  4. PROTAPHAN [Concomitant]
  5. CALCICHEW D3 [Concomitant]
  6. BISOPROLOL [Concomitant]
  7. FELODIPINE [Concomitant]
  8. TELMISARTAN [Concomitant]
     Dosage: UNK
  9. APURIN [Concomitant]
  10. ESOMEPRAZOLE [Concomitant]
     Dosage: 20 MO X 2
     Route: 048
     Dates: start: 20120412

REACTIONS (2)
  - Haemoptysis [Recovered/Resolved]
  - Gastrointestinal haemorrhage [Recovered/Resolved]
